FAERS Safety Report 12295647 (Version 1)
Quarter: 2016Q2

REPORT INFORMATION
  Report Type: Report from Study
  Country: US (occurrence: US)
  Receive Date: 20160422
  Receipt Date: 20160422
  Transmission Date: 20160815
  Serious: Yes (Other)
  Sender: FDA-Public Use
  Company Number: ADR-2015-01366

PATIENT
  Age: 45 Year
  Sex: Female

DRUGS (18)
  1. MIRALAX [Suspect]
     Active Substance: POLYETHYLENE GLYCOL 3350
     Dosage: EVERY OTHER DAY AS NEEDED
     Route: 048
  2. BACLOFEN. [Suspect]
     Active Substance: BACLOFEN
     Indication: MUSCLE SPASMS
     Dosage: 10MG TABLET UP TO 3X DAILY AS NEEDED FOR SPASMS
     Route: 048
  3. ZOFRAN [Suspect]
     Active Substance: ONDANSETRON HYDROCHLORIDE
     Dosage: DAILY AS NEEDED
     Route: 048
  4. DOCUSATE SODIUM. [Suspect]
     Active Substance: DOCUSATE SODIUM
     Indication: CONSTIPATION
     Dosage: 100MG CAPSULE TWICE DAILY AS NEEDED FOR CONSTIPATION
     Route: 048
  5. MIDODRINE [Suspect]
     Active Substance: MIDODRINE
     Dosage: 10MG TABLET THREE TIMES DAILY
     Route: 048
  6. LIDODERM [Suspect]
     Active Substance: LIDOCAINE
     Dosage: APPLY 2 PATCHES ON BACK AT NIGHT
  7. OXYBUTYNIN [Suspect]
     Active Substance: OXYBUTYNIN
     Dosage: 10MG TWICE DAILY
     Route: 048
  8. LIORESAL [Suspect]
     Active Substance: BACLOFEN
     Dosage: 360.6 MCG/DAY
     Route: 037
  9. XARELTO [Suspect]
     Active Substance: RIVAROXABAN
     Dosage: 20MG TABLET DAILY
     Route: 048
  10. ENEMEEZ [Suspect]
     Active Substance: DOCUSATE SODIUM
     Dosage: DAILY
     Route: 054
  11. HYDROCODONE-ACETAMINOPEN [Suspect]
     Active Substance: ACETAMINOPHEN\HYDROCODONE
     Indication: PAIN
     Dosage: 1 TABLET EVERY 4 HOURS AS NEEDED FOR PAI
     Route: 048
  12. UROCIT-K [Suspect]
     Active Substance: POTASSIUM CITRATE
     Dosage: 10MG TABLET TWICE DAILY
     Route: 048
  13. NEXIUM [Suspect]
     Active Substance: ESOMEPRAZOLE MAGNESIUM
     Dosage: IN THE MORNING
  14. LIORESAL [Suspect]
     Active Substance: BACLOFEN
     Dosage: 524.4MCG/DAY
     Route: 037
  15. NYSTATIN-HYDROCORTISONE-DIPHEN [Suspect]
     Active Substance: DIPHENHYDRAMINE HYDROCHLORIDE\HYDROCORTISONE\NYSTATIN
     Dosage: TWICE DAILY AS NEEDED
  16. FLORINEF ACETATE [Suspect]
     Active Substance: FLUDROCORTISONE ACETATE
     Dosage: 1 TABLET DAILY
     Route: 048
  17. FLONASE [Suspect]
     Active Substance: FLUTICASONE PROPIONATE
     Dosage: DAILY AS NEEDED
  18. ZOLOFT [Suspect]
     Active Substance: SERTRALINE HYDROCHLORIDE
     Dosage: 25MG TABLET DAILY
     Route: 048

REACTIONS (3)
  - Medical device site pain [Recovered/Resolved]
  - Device inversion [None]
  - Muscle spasticity [Recovered/Resolved]
